FAERS Safety Report 18361779 (Version 2)
Quarter: 2020Q4

REPORT INFORMATION
  Report Type: Spontaneous
  Country: US (occurrence: US)
  Receive Date: 20201008
  Receipt Date: 20201016
  Transmission Date: 20210114
  Serious: Yes (Hospitalization, Other)
  Sender: FDA-Public Use
  Company Number: US-ASTRAZENECA-2020SF27436

PATIENT
  Age: 16958 Day
  Sex: Female
  Weight: 106.6 kg

DRUGS (50)
  1. FARXIGA [Suspect]
     Active Substance: DAPAGLIFLOZIN PROPANEDIOL
     Indication: TYPE 2 DIABETES MELLITUS
     Route: 048
     Dates: start: 20170106
  2. FARXIGA [Suspect]
     Active Substance: DAPAGLIFLOZIN PROPANEDIOL
     Indication: WEIGHT DECREASED
     Route: 048
     Dates: start: 20170106
  3. FARXIGA [Suspect]
     Active Substance: DAPAGLIFLOZIN PROPANEDIOL
     Indication: TYPE 2 DIABETES MELLITUS
     Dosage: GENERIC
     Route: 048
     Dates: start: 20160818
  4. ZESTORETIC [Concomitant]
     Active Substance: HYDROCHLOROTHIAZIDE\LISINOPRIL
  5. METFORMIN [Concomitant]
     Active Substance: METFORMIN HYDROCHLORIDE
     Dates: start: 20170629
  6. ZOFRAN [Concomitant]
     Active Substance: ONDANSETRON HYDROCHLORIDE
  7. VITAMIN B12 [Concomitant]
     Active Substance: CYANOCOBALAMIN
  8. ZEMURON [Concomitant]
     Active Substance: ROCURONIUM BROMIDE
  9. GLIPIZIDE. [Concomitant]
     Active Substance: GLIPIZIDE
     Dates: start: 20180904
  10. XIGDUO XR [Concomitant]
     Active Substance: DAPAGLIFLOZIN PROPANEDIOL\METFORMIN HYDROCHLORIDE
     Dates: start: 20180904
  11. GARAMYCIN [Concomitant]
     Active Substance: GENTAMICIN SULFATE
  12. CARBOXYMETHYLCELLULOSE [Concomitant]
     Active Substance: CARBOXYMETHYLCELLULOSE
  13. SERTRALINE [Concomitant]
     Active Substance: SERTRALINE HYDROCHLORIDE
     Dates: start: 20170918
  14. FERROUS SULFATE. [Concomitant]
     Active Substance: FERROUS SULFATE
  15. CLARITIN [Concomitant]
     Active Substance: LORATADINE
  16. MORPHINE [Concomitant]
     Active Substance: MORPHINE
  17. VICTOZA [Concomitant]
     Active Substance: LIRAGLUTIDE
     Dates: start: 20180703
  18. PANTOPRAZOLE [Concomitant]
     Active Substance: PANTOPRAZOLE
  19. MERREM [Concomitant]
     Active Substance: MEROPENEM
  20. MAGNESIUM SULFATE. [Concomitant]
     Active Substance: MAGNESIUM SULFATE
  21. MIDAZOLAM. [Concomitant]
     Active Substance: MIDAZOLAM
  22. FARXIGA [Suspect]
     Active Substance: DAPAGLIFLOZIN PROPANEDIOL
     Indication: WEIGHT DECREASED
     Dosage: GENERIC
     Route: 048
     Dates: start: 20160818
  23. FARXIGA [Suspect]
     Active Substance: DAPAGLIFLOZIN PROPANEDIOL
     Indication: TYPE 2 DIABETES MELLITUS
     Route: 048
     Dates: start: 20160215
  24. CYMBALTA [Concomitant]
     Active Substance: DULOXETINE HYDROCHLORIDE
     Dates: start: 20180118
  25. CLINDAMYCIN. [Concomitant]
     Active Substance: CLINDAMYCIN
  26. VANCOMYCIN [Concomitant]
     Active Substance: VANCOMYCIN
  27. ANECTINE [Concomitant]
     Active Substance: SUCCINYLCHOLINE CHLORIDE
  28. LISINOPRIL. [Suspect]
     Active Substance: LISINOPRIL
     Dates: start: 20180118
  29. FARXIGA [Suspect]
     Active Substance: DAPAGLIFLOZIN PROPANEDIOL
     Indication: WEIGHT DECREASED
     Route: 048
     Dates: start: 20160222, end: 20170601
  30. FARXIGA [Suspect]
     Active Substance: DAPAGLIFLOZIN PROPANEDIOL
     Indication: WEIGHT DECREASED
     Route: 048
     Dates: start: 20160215
  31. PLAQUENIL [Concomitant]
     Active Substance: HYDROXYCHLOROQUINE SULFATE
  32. FISH OIL [Concomitant]
     Active Substance: FISH OIL
  33. LANTUS [Concomitant]
     Active Substance: INSULIN GLARGINE
  34. DAKIN [Concomitant]
  35. DIABETA [Concomitant]
     Active Substance: GLYBURIDE
  36. FARXIGA [Suspect]
     Active Substance: DAPAGLIFLOZIN PROPANEDIOL
     Indication: HYPOTENSION
     Route: 048
     Dates: start: 20160222, end: 20170601
  37. FOLIC ACID. [Concomitant]
     Active Substance: FOLIC ACID
     Dates: start: 20170323
  38. LAMICTAL [Concomitant]
     Active Substance: LAMOTRIGINE
  39. MUPIROCIN. [Concomitant]
     Active Substance: MUPIROCIN
  40. PILOCARPINE. [Concomitant]
     Active Substance: PILOCARPINE
     Dates: start: 20161215
  41. SALAGEN [Concomitant]
     Active Substance: PILOCARPINE HYDROCHLORIDE
  42. NORCO [Concomitant]
     Active Substance: ACETAMINOPHEN\HYDROCODONE BITARTRATE
     Dates: start: 20171110
  43. POTASSIUM CHLORIDE. [Concomitant]
     Active Substance: POTASSIUM CHLORIDE
  44. MONODOX [Concomitant]
     Active Substance: DOXYCYCLINE
  45. FARXIGA [Suspect]
     Active Substance: DAPAGLIFLOZIN PROPANEDIOL
     Indication: TYPE 2 DIABETES MELLITUS
     Route: 048
     Dates: start: 20160222, end: 20170601
  46. FARXIGA [Suspect]
     Active Substance: DAPAGLIFLOZIN PROPANEDIOL
     Indication: HYPOTENSION
     Route: 048
     Dates: start: 20170106
  47. FARXIGA [Suspect]
     Active Substance: DAPAGLIFLOZIN PROPANEDIOL
     Indication: HYPOTENSION
     Dosage: GENERIC
     Route: 048
     Dates: start: 20160818
  48. FARXIGA [Suspect]
     Active Substance: DAPAGLIFLOZIN PROPANEDIOL
     Indication: HYPOTENSION
     Route: 048
     Dates: start: 20160215
  49. PERCOCET [Concomitant]
     Active Substance: ACETAMINOPHEN\OXYCODONE HYDROCHLORIDE
     Dates: start: 20171110
  50. LOVENOX [Concomitant]
     Active Substance: ENOXAPARIN SODIUM

REACTIONS (9)
  - Fournier^s gangrene [Unknown]
  - Abscess limb [Unknown]
  - Rectal abscess [Unknown]
  - Scar [Unknown]
  - Nerve injury [Unknown]
  - Pain [Unknown]
  - Perirectal abscess [Unknown]
  - Sepsis [Unknown]
  - Necrotising fasciitis [Unknown]

NARRATIVE: CASE EVENT DATE: 20170506
